FAERS Safety Report 12270134 (Version 2)
Quarter: 2016Q2

REPORT INFORMATION
  Report Type: Spontaneous
  Country: US (occurrence: US)
  Receive Date: 20160415
  Receipt Date: 20160422
  Transmission Date: 20160815
  Serious: Yes (Other)
  Sender: FDA-Public Use
  Company Number: US-CIPLA LTD.-2016US03803

PATIENT

DRUGS (2)
  1. TOPIRAMATE. [Suspect]
     Active Substance: TOPIRAMATE
     Indication: BACK PAIN
     Dosage: 25 MG, QD
     Route: 048
     Dates: start: 20160331
  2. TOPIRAMATE. [Suspect]
     Active Substance: TOPIRAMATE
     Dosage: 25 MG, BID
     Route: 048
     Dates: end: 20160407

REACTIONS (1)
  - Condition aggravated [Recovering/Resolving]
